FAERS Safety Report 7158072-X (Version None)
Quarter: 2010Q4

REPORT INFORMATION
  Report Type: 
  Country: None (occurrence: None)
  Receive Date: 20101214
  Receipt Date: 20100420
  Transmission Date: 20110411
  Serious: No
  Sender: FDA-Public Use
  Company Number: US-ASTRAZENECA-2010SE15153

PATIENT
  Sex: Female
  Weight: 78.9 kg

DRUGS (6)
  1. RECLAST [Suspect]
  2. CRESTOR [Suspect]
     Route: 048
     Dates: start: 20100101
  3. HCT [Concomitant]
     Indication: OEDEMA
  4. METOPROLOL [Concomitant]
     Indication: HYPERTENSION
  5. DILTIAZEM [Concomitant]
     Indication: HYPERTENSION
  6. SERTRALINE [Concomitant]
     Indication: DEPRESSION

REACTIONS (5)
  - ABDOMINAL PAIN [None]
  - DEHYDRATION [None]
  - NAUSEA [None]
  - NERVOUSNESS [None]
  - URINE ABNORMALITY [None]
